FAERS Safety Report 25439591 (Version 2)
Quarter: 2025Q2

REPORT INFORMATION
  Report Type: Report from Study
  Country: US (occurrence: US)
  Receive Date: 20250616
  Receipt Date: 20250620
  Transmission Date: 20250716
  Serious: Yes (Other)
  Sender: NOVARTIS
  Company Number: US-002147023-NVSC2025US091718

PATIENT
  Sex: Male

DRUGS (1)
  1. TASIGNA [Suspect]
     Active Substance: NILOTINIB
     Indication: Product used for unknown indication
     Route: 065

REACTIONS (7)
  - Chronic leukaemia [Unknown]
  - Myocardial infarction [Unknown]
  - Chronic myeloid leukaemia [Unknown]
  - Thyroid disorder [Unknown]
  - Tinnitus [Unknown]
  - Sleep deficit [Unknown]
  - Cardiac disorder [Unknown]
